FAERS Safety Report 7494853-0 (Version None)
Quarter: 2011Q2

REPORT INFORMATION
  Report Type: 
  Country: None (occurrence: None)
  Receive Date: 20110520
  Receipt Date: 20110516
  Transmission Date: 20111010
  Serious: Yes (Other)
  Sender: FDA-Public Use
  Company Number: US-CEPHALON-2011002426

PATIENT
  Age: 58 Year
  Sex: Male

DRUGS (2)
  1. ALLOPURINOL [Concomitant]
     Dates: end: 20100101
  2. TREANDA [Suspect]
     Indication: CHRONIC LYMPHOCYTIC LEUKAEMIA RECURRENT
     Route: 042
     Dates: end: 20100101

REACTIONS (2)
  - RASH PRURITIC [None]
  - RASH MACULAR [None]
